FAERS Safety Report 8983504 (Version 1)
Quarter: 2012Q4

REPORT INFORMATION
  Report Type: 
  Country: US (occurrence: US)
  Receive Date: 20121224
  Receipt Date: 20121224
  Transmission Date: 20130627
  Serious: No
  Sender: FDA-Public Use
  Company Number: US-BIOGENIDEC-2012BI061529

PATIENT
  Age: 50 Year
  Sex: Female

DRUGS (1)
  1. TYSABRI [Suspect]
     Indication: MULTIPLE SCLEROSIS
     Route: 042
     Dates: start: 20100311

REACTIONS (4)
  - Ear pain [Recovered/Resolved]
  - Decreased immune responsiveness [Not Recovered/Not Resolved]
  - Herpes zoster [Recovered/Resolved]
  - Headache [Recovered/Resolved]
